FAERS Safety Report 5075196-1 (Version None)
Quarter: 2006Q3

REPORT INFORMATION
  Report Type: 
  Country: None (occurrence: None)
  Receive Date: 20060803
  Receipt Date: 20060803
  Transmission Date: 20061208
  Serious: Yes (Other)
  Sender: FDA-Public Use
  Company Number: None

PATIENT
  Age: 72 Year
  Sex: Male

DRUGS (1)
  1. BENADRYL [Suspect]
     Indication: COMPUTERISED TOMOGRAM
     Dosage: 25MG ONE TIME IV DRIP
     Dates: start: 20060609, end: 20060609

REACTIONS (6)
  - DISORIENTATION [None]
  - DYSKINESIA [None]
  - DYSPNOEA [None]
  - MENTAL STATUS CHANGES [None]
  - MOTOR DYSFUNCTION [None]
  - RESTLESSNESS [None]
